FAERS Safety Report 10228728 (Version 2)
Quarter: 2014Q3

REPORT INFORMATION
  Report Type: Spontaneous
  Country: NO (occurrence: NO)
  Receive Date: 20140610
  Receipt Date: 20140902
  Transmission Date: 20150326
  Serious: Yes (Disabling)
  Sender: FDA-Public Use
  Company Number: NO-WATSON-2014-11860

PATIENT
  Age: 23 Year
  Sex: Male

DRUGS (18)
  1. METHOTREXATE (METHOTREXATE SODIUM) [Suspect]
     Active Substance: METHOTREXATE SODIUM
     Indication: T-CELL TYPE ACUTE LEUKAEMIA
     Dosage: UNK. ACCORDING TO NOPHO-ALL 2000 PROTOCOL
     Route: 065
     Dates: start: 20070425, end: 2009
  2. METHOTREXATE (METHOTREXATE SODIUM) [Suspect]
     Active Substance: METHOTREXATE SODIUM
     Indication: PANCYTOPENIA
     Dosage: UNK
     Route: 065
  3. ONCOVIN [Suspect]
     Active Substance: VINCRISTINE SULFATE
     Indication: T-CELL TYPE ACUTE LEUKAEMIA
     Dosage: UNK; ACCORDING TO THE NOPHO-ALL 2000 PROTOCOL
     Route: 042
     Dates: start: 20070425, end: 2009
  4. LANVIS [Suspect]
     Active Substance: THIOGUANINE ANHYDROUS
     Indication: T-CELL TYPE ACUTE LEUKAEMIA
     Dosage: UNK; ACCORDING TO THE NOPHO-ALL 2000 PROTOCOL
     Route: 048
     Dates: start: 20070613, end: 20080723
  5. CARMUSTINE [Suspect]
     Active Substance: CARMUSTINE
     Indication: T-CELL TYPE ACUTE LEUKAEMIA
     Dosage: UNK; ACOORDING TO THE NOPHO-ALL 2000 PROTOCOL
     Route: 065
     Dates: start: 20080630, end: 20080825
  6. CYTARABINE. [Suspect]
     Active Substance: CYTARABINE
     Indication: T-CELL TYPE ACUTE LEUKAEMIA
     Dosage: UNK. ACCORDING TO THE NOPHO-ALL 2000 PROTOCOL
     Route: 042
     Dates: start: 20070615, end: 20071214
  7. CYTOSAR [Suspect]
     Active Substance: CYTARABINE
     Indication: T-CELL TYPE ACUTE LEUKAEMIA
     Dosage: UNK; ACCORDING TO THE NOPHO-ALL 2000 PROTOCOL
     Route: 042
     Dates: start: 20070713, end: 20080903
  8. PREDNISOLONE (UNKNOWN) [Suspect]
     Active Substance: PREDNISOLONE
     Dosage: 50 MG, BID
     Route: 065
     Dates: start: 20070420, end: 20070424
  9. DOXORUBICIN (UNKNOWN) [Suspect]
     Active Substance: DOXORUBICIN
     Indication: T-CELL TYPE ACUTE LEUKAEMIA
     Dosage: UNK. ACCORDING TO NOPHO-ALL 2000 PROTOCOL
     Route: 042
     Dates: start: 20070425, end: 20071114
  10. CYCLOPHOSPHAMIDE (UNKNOWN) [Suspect]
     Active Substance: CYCLOPHOSPHAMIDE
     Indication: T-CELL TYPE ACUTE LEUKAEMIA
     Dosage: UNK; ACCORDING TO THE NOPHO-ALL 2000 PROTOCOL
     Route: 042
     Dates: start: 20070613, end: 20070711
  11. PREDNISOLONE (UNKNOWN) [Suspect]
     Active Substance: PREDNISOLONE
     Indication: T-CELL TYPE ACUTE LEUKAEMIA
     Dosage: 65 MG, UNK; 65 MG + 50 MG CONT. FOR SIX WEEKS
     Route: 065
     Dates: start: 20070425
  12. DEXAMETHASONE (UNKNOWN) [Suspect]
     Active Substance: DEXAMETHASONE
     Indication: T-CELL TYPE ACUTE LEUKAEMIA
     Dosage: UNK. ACCORDING TO THE NOPHO-ALL 2000 PROTOCOL
     Route: 048
     Dates: start: 20071031, end: 2009
  13. PURINETHOL [Suspect]
     Active Substance: MERCAPTOPURINE
     Indication: T-CELL TYPE ACUTE LEUKAEMIA
     Dosage: 150 MG, QPM
     Route: 065
     Dates: start: 20080924, end: 2009
  14. PURINETHOL [Suspect]
     Active Substance: MERCAPTOPURINE
     Indication: PANCYTOPENIA
     Dosage: UNK; DAY 1-45 OF THE NOPHO-ALL 2000 PROTOCOL
     Route: 065
     Dates: start: 20080213
  15. L-ASPARAGINASE [Suspect]
     Active Substance: ASPARAGINASE
     Indication: T-CELL TYPE ACUTE LEUKAEMIA
     Dosage: UNK; ACCORDING TO THE NOPHO-ALL 2000 PROTOCOL
     Route: 030
     Dates: start: 20070531, end: 20071031
  16. DAUNORUBICIN [Suspect]
     Active Substance: DAUNORUBICIN
     Indication: T-CELL TYPE ACUTE LEUKAEMIA
     Dosage: UNK; ACCORDING TO THE NOPHO-ALL 2000 PROTOCOL
     Route: 042
     Dates: start: 20080616, end: 20080811
  17. VINCRISTINE (UNKNOWN) [Suspect]
     Active Substance: VINCRISTINE
     Indication: T-CELL TYPE ACUTE LEUKAEMIA
     Dosage: 2 MG, 1X/DAY (DAY 47 OF FIRST LSA2L2 CYCLE)
     Route: 042
     Dates: start: 20080713, end: 20080713
  18. HYDROXYUREA. [Suspect]
     Active Substance: HYDROXYUREA
     Indication: T-CELL TYPE ACUTE LEUKAEMIA
     Dosage: 5000 MG, DAILY; DAY 15-18 OF FIRST LSA2L2 CYCLE
     Route: 065
     Dates: start: 20080611, end: 20080614

REACTIONS (3)
  - Hip deformity [Unknown]
  - Osteonecrosis [Not Recovered/Not Resolved]
  - Deafness [Not Recovered/Not Resolved]

NARRATIVE: CASE EVENT DATE: 20120906
